FAERS Safety Report 7718510-8 (Version None)
Quarter: 2011Q3

REPORT INFORMATION
  Report Type: 
  Country: None (occurrence: None)
  Receive Date: 20110830
  Receipt Date: 20110829
  Transmission Date: 20111222
  Serious: No
  Sender: FDA-Public Use
  Company Number: US-PFIZER INC-2011200678

PATIENT
  Sex: Female
  Weight: 65.76 kg

DRUGS (2)
  1. DIOVAN HCT [Interacting]
     Indication: HYPERTENSION
     Dosage: 320/12.5 MG, DAILY
     Route: 048
  2. ADVIL PM [Suspect]
     Indication: ARTHRALGIA
     Dosage: TWO TABLET AT NIGHT
     Route: 048

REACTIONS (3)
  - MIDDLE INSOMNIA [None]
  - ANXIETY [None]
  - BLOOD PRESSURE INCREASED [None]
